FAERS Safety Report 9404243 (Version 2)
Quarter: 2013Q4

REPORT INFORMATION
  Report Type: Spontaneous
  Country: US (occurrence: US)
  Receive Date: 20130717
  Receipt Date: 20131101
  Transmission Date: 20140711
  Serious: Yes (Hospitalization, Other)
  Sender: FDA-Public Use
  Company Number: US-BAYER-2013-084334

PATIENT
  Age: 35 Year
  Sex: Female
  Weight: 63.49 kg

DRUGS (2)
  1. MIRENA [Suspect]
     Indication: CONTRACEPTION
     Dosage: 20 MCG/24HR, CONT
     Route: 015
     Dates: start: 20091102, end: 20120723
  2. LISINOPRIL [Concomitant]

REACTIONS (16)
  - Uterine perforation [None]
  - Polycystic ovaries [None]
  - Infertility female [None]
  - Abdominal pain [None]
  - Pelvic pain [None]
  - Endometriosis [None]
  - Injury [None]
  - Emotional distress [None]
  - Medical device complication [None]
  - Pain [None]
  - Genital haemorrhage [None]
  - Internal injury [None]
  - Discomfort [None]
  - Depression [None]
  - Anxiety [None]
  - Device issue [None]
